FAERS Safety Report 19918140 (Version 1)
Quarter: 2021Q4

REPORT INFORMATION
  Report Type: Spontaneous
  Country: US (occurrence: US)
  Receive Date: 20211005
  Receipt Date: 20211005
  Transmission Date: 20220303
  Serious: Yes (unspecified)
  Sender: FDA-Public Use
  Company Number: None

PATIENT
  Age: 63 Year
  Sex: Female
  Weight: 70.65 kg

DRUGS (3)
  1. LOTRIMIN ANTIFUNGAL (MICONAZOLE NITRATE) [Suspect]
     Active Substance: MICONAZOLE NITRATE
     Indication: Tinea pedis
     Dosage: APPLY
     Route: 061
  2. VITAMIN D [Concomitant]
     Active Substance: VITAMIN D NOS
  3. MIGRAINE RELIEF CAPSULES [Concomitant]

REACTIONS (2)
  - Infection [None]
  - Pain [None]

NARRATIVE: CASE EVENT DATE: 20210721
